FAERS Safety Report 9785543 (Version 1)
Quarter: 2013Q4

REPORT INFORMATION
  Report Type: Spontaneous
  Country: US (occurrence: US)
  Receive Date: 20131227
  Receipt Date: 20131227
  Transmission Date: 20140711
  Serious: Yes (Hospitalization, Other)
  Sender: FDA-Public Use
  Company Number: US-ASTELLAS-2013US013373

PATIENT
  Age: 40 Year
  Sex: Male
  Weight: 95 kg

DRUGS (2)
  1. PROGRAF [Suspect]
     Indication: RENAL TRANSPLANT
     Dosage: 3 MG, BID
     Route: 048
     Dates: start: 20051119
  2. PROGRAF [Suspect]
     Indication: PANCREAS TRANSPLANT

REACTIONS (6)
  - Off label use [Unknown]
  - Investigation [Unknown]
  - Transplant failure [Unknown]
  - Diarrhoea [Recovered/Resolved]
  - Infection [Recovered/Resolved]
  - Diabetes mellitus [Recovered/Resolved]
